FAERS Safety Report 14511687 (Version 8)
Quarter: 2018Q2

REPORT INFORMATION
  Report Type: Spontaneous
  Country: CA (occurrence: CA)
  Receive Date: 20180209
  Receipt Date: 20180529
  Transmission Date: 20180711
  Serious: Yes (Hospitalization, Other)
  Sender: FDA-Public Use
  Company Number: CA-CELLTRION INC.-2017CA006090

PATIENT

DRUGS (13)
  1. INFLECTRA [Suspect]
     Active Substance: INFLIXIMAB-DYYB
     Dosage: 363 MG, CYCLIC (EVERY 6 WEEKS THEN EVERY 8 WEEKS)
     Route: 065
  2. INFLECTRA [Suspect]
     Active Substance: INFLIXIMAB-DYYB
     Dosage: 363 MG, CYCLIC EVERY 8 WEEKS
     Route: 042
     Dates: start: 20180327, end: 20180327
  3. SALOFALK                           /00000301/ [Concomitant]
     Active Substance: MESALAMINE
     Dosage: 500 MG, DAILY
     Route: 048
     Dates: start: 2005
  4. AMINOSALICYLIC ACID [Concomitant]
     Active Substance: AMINOSALICYLIC ACID
  5. INFLECTRA [Suspect]
     Active Substance: INFLIXIMAB-DYYB
     Indication: COLITIS ULCERATIVE
     Dosage: 363 MG, CYCLIC (EVERY 0,2,6, WEEKS THEN EVERY 8 WEEKS)
     Route: 042
     Dates: start: 20170503
  6. INFLECTRA [Suspect]
     Active Substance: INFLIXIMAB-DYYB
     Dosage: 363 MG, CYCLIC (EVERY 6 WEEKS THEN EVERY 8 WEEKS)
     Route: 065
  7. PREDNISONE. [Concomitant]
     Active Substance: PREDNISONE
     Dosage: 40 MG, UNK
     Route: 065
     Dates: start: 20170306
  8. INFLECTRA [Suspect]
     Active Substance: INFLIXIMAB-DYYB
     Dosage: 363 MG, CYCLIC (EVERY 6 WEEKS THEN EVERY 8 WEEKS)
     Route: 065
  9. SODIUM CHLORIDE. [Concomitant]
     Active Substance: SODIUM CHLORIDE
     Dosage: 0.9 %, UNK
     Dates: start: 20170303
  10. IMURAN [Concomitant]
     Active Substance: AZATHIOPRINE
     Dosage: 175 MG, DAILY
     Route: 065
     Dates: start: 2005
  11. PREDNISONE. [Concomitant]
     Active Substance: PREDNISONE
     Dosage: 5 MG, (3 X 5 MG TABLETS), DAILY
     Route: 065
  12. INFLECTRA [Suspect]
     Active Substance: INFLIXIMAB-DYYB
     Dosage: 363 MG, CYCLIC (EVERY 6 WEEKS THEN EVERY 8 WEEKS)
     Route: 042
     Dates: start: 20171206
  13. SALOFALK 2 G [Concomitant]
     Dosage: UNK

REACTIONS (24)
  - Herpes zoster [Recovering/Resolving]
  - Demyelination [Unknown]
  - Heart rate increased [Unknown]
  - Muscular weakness [Unknown]
  - Pollakiuria [Not Recovered/Not Resolved]
  - Injection site pain [Recovered/Resolved]
  - Fatigue [Unknown]
  - Dizziness [Not Recovered/Not Resolved]
  - Oropharyngeal pain [Recovering/Resolving]
  - Intervertebral disc degeneration [Unknown]
  - Asthenia [Not Recovered/Not Resolved]
  - Drug effect incomplete [Unknown]
  - Poor venous access [Unknown]
  - Contusion [Unknown]
  - Peripheral coldness [Unknown]
  - Spinal column stenosis [Unknown]
  - Intervertebral disc protrusion [Unknown]
  - Sensation of foreign body [Recovered/Resolved]
  - Dizziness [Not Recovered/Not Resolved]
  - Alopecia [Unknown]
  - Hemiparesis [Unknown]
  - Throat irritation [Recovered/Resolved]
  - Headache [Unknown]
  - Pain [Unknown]

NARRATIVE: CASE EVENT DATE: 2017
